FAERS Safety Report 9887996 (Version 1)
Quarter: 2014Q1

REPORT INFORMATION
  Report Type: Spontaneous
  Country: DE (occurrence: DE)
  Receive Date: 20140211
  Receipt Date: 20140211
  Transmission Date: 20141002
  Serious: Yes (Disabling)
  Sender: FDA-Public Use
  Company Number: DE-MERCK-1402DEU003881

PATIENT
  Age: 74 Year
  Sex: Female
  Weight: 51 kg

DRUGS (6)
  1. XELEVIA [Suspect]
     Indication: DIABETES MELLITUS
     Dosage: UNK
     Route: 048
     Dates: start: 20130903, end: 20131202
  2. CORVATON [Concomitant]
     Dosage: 8 MG, BID, RETARD TABLET
     Route: 048
     Dates: start: 20000101
  3. SPIRIVA [Concomitant]
     Dosage: 18 MICROGRAM, ONE INHALATION A DAY, CAPSULE FOR ORAL INHALATION, ALSO REPORTED AS ORAL.
     Route: 055
     Dates: start: 20000101
  4. RAMIPRIL [Concomitant]
     Dosage: HALF TABLET, BID, TOTAL DAILY DOSE 5 MG
     Route: 048
     Dates: start: 20000101
  5. TORSEMIDE [Concomitant]
     Dosage: HALF TABLET, QD, TOTAL DAILY DOSE 5 MG
     Route: 048
     Dates: start: 20000101
  6. ATORVASTATIN [Concomitant]
     Dosage: 10 MG, QD
     Route: 048
     Dates: start: 20000101

REACTIONS (4)
  - Gastric disorder [Unknown]
  - Vomiting [Recovered/Resolved]
  - Decreased appetite [Unknown]
  - Abdominal pain upper [Recovered/Resolved]
